FAERS Safety Report 5028070-0 (Version None)
Quarter: 2006Q2

REPORT INFORMATION
  Report Type: 
  Country: None (occurrence: None)
  Receive Date: 20060613
  Receipt Date: 20060605
  Transmission Date: 20061013
  Serious: Yes (Other)
  Sender: FDA-Public Use
  Company Number: 007655

PATIENT
  Age: 63 Year
  Sex: Female

DRUGS (5)
  1. MEDROXYPROGESTERONE ACETATE [Suspect]
     Dosage: ORAL
     Route: 048
     Dates: start: 19950101, end: 20040101
  2. PROVERA [Suspect]
     Dosage: ORAL
     Route: 048
     Dates: start: 19950101, end: 20040101
  3. ESTRADERM [Suspect]
     Dosage: TRANSDERMAL
     Route: 062
     Dates: start: 19950101, end: 20040101
  4. COMBIPATCH [Suspect]
     Dosage: TRANSDERMAL
     Route: 062
     Dates: start: 19950101, end: 20040101
  5. CLIMARA [Suspect]
     Dosage: ORAL
     Route: 048
     Dates: start: 19950101, end: 20040101

REACTIONS (1)
  - BREAST CANCER FEMALE [None]
